FAERS Safety Report 4539525-7 (Version None)
Quarter: 2004Q4

REPORT INFORMATION
  Report Type: 
  Country: None (occurrence: None)
  Receive Date: 20041222
  Receipt Date: 20041203
  Transmission Date: 20050328
  Serious: Yes (Death)
  Sender: FDA-Public Use
  Company Number: FR_041205371

PATIENT
  Age: 30 Year
  Sex: Female

DRUGS (3)
  1. ZYPREXA [Suspect]
     Indication: SCHIZOPHRENIA
     Dosage: 20 MG DAY
     Dates: start: 20041105
  2. EFFEXOR (VENLAFFAXINE HYDROCHLORIDE) [Concomitant]
  3. XANAX [Concomitant]

REACTIONS (6)
  - ANTIPSYCHOTIC DRUG LEVEL INCREASED [None]
  - COMPLETED SUICIDE [None]
  - CONDITION AGGRAVATED [None]
  - DELIRIUM [None]
  - INJURY ASPHYXIATION [None]
  - SCHIZOPHRENIA [None]
